FAERS Safety Report 5022369-X (Version None)
Quarter: 2006Q2

REPORT INFORMATION
  Report Type: 
  Country: None (occurrence: None)
  Receive Date: 20060605
  Receipt Date: 20060519
  Transmission Date: 20061013
  Serious: Yes (Hospitalization)
  Sender: FDA-Public Use
  Company Number: DSA_27932_2006

PATIENT
  Age: 49 Year
  Sex: Female

DRUGS (6)
  1. TAVOR [Suspect]
     Dosage: 0.5 MG Q DAY PO
     Route: 048
     Dates: start: 20060209, end: 20060210
  2. TAVOR [Suspect]
     Dosage: 1 MG Q DAY PO
     Route: 048
     Dates: start: 20060207, end: 20060208
  3. TAVOR [Suspect]
     Dosage: 1.5 MG Q DAY PO
     Route: 048
     Dates: start: 20060130, end: 20060206
  4. TAVOR [Suspect]
     Dosage: 2 MG Q DAY PO
     Route: 048
     Dates: start: 20051020, end: 20060129
  5. ZYPREXA [Suspect]
     Dosage: 20 MG Q DAY PO
     Route: 048
     Dates: start: 20060127, end: 20060211
  6. ZYPREXA [Suspect]
     Dosage: 15 MG Q DAY PO
     Route: 048
     Dates: start: 20051215, end: 20060126

REACTIONS (7)
  - CONVULSION [None]
  - DISORIENTATION [None]
  - FALL [None]
  - HYPONATRAEMIA [None]
  - LOSS OF CONSCIOUSNESS [None]
  - POLYDIPSIA [None]
  - VOMITING [None]
